FAERS Safety Report 8491622-X (Version None)
Quarter: 2012Q3

REPORT INFORMATION
  Report Type: 
  Country: None (occurrence: None)
  Receive Date: 20120706
  Receipt Date: 20120627
  Transmission Date: 20120928
  Serious: Yes (Other)
  Sender: FDA-Public Use
  Company Number: JP-VERTEX PHARMACEUTICALS INC.-AE-2012-007677

PATIENT
  Age: 63 Year
  Sex: Female

DRUGS (13)
  1. RIBAVIRIN [Concomitant]
     Route: 048
     Dates: start: 20120611
  2. PEGINTERFERON ALFA-2B [Concomitant]
     Route: 058
     Dates: start: 20120416
  3. CLARITIN REDITABS [Concomitant]
     Route: 048
  4. RIBAVIRIN [Concomitant]
     Route: 048
     Dates: start: 20120501, end: 20120527
  5. EPADEL S [Concomitant]
     Route: 048
  6. TELAVIC (TELAPREVIR) [Suspect]
     Indication: HEPATITIS C
     Route: 048
     Dates: start: 20120320, end: 20120520
  7. RIBAVIRIN [Concomitant]
     Route: 048
     Dates: start: 20120409, end: 20120430
  8. NIZATIDINE [Concomitant]
     Route: 048
  9. PEGINTERFERON ALFA-2B [Concomitant]
     Indication: HEPATITIS C
     Route: 058
     Dates: start: 20120320, end: 20120409
  10. FEROTYM [Concomitant]
     Route: 048
  11. TELAVIC (TELAPREVIR) [Suspect]
     Route: 048
     Dates: start: 20120521, end: 20120527
  12. RIBAVIRIN [Concomitant]
     Indication: HEPATITIS C
     Route: 048
     Dates: start: 20120320, end: 20120408
  13. LIVALO [Concomitant]
     Route: 048

REACTIONS (3)
  - PLATELET COUNT DECREASED [None]
  - RASH [None]
  - ANAEMIA [None]
